FAERS Safety Report 8181527-6 (Version None)
Quarter: 2012Q1

REPORT INFORMATION
  Report Type: 
  Country: None (occurrence: None)
  Receive Date: 20120302
  Receipt Date: 20120223
  Transmission Date: 20120608
  Serious: Yes (Hospitalization)
  Sender: FDA-Public Use
  Company Number: US-TEVA-318753USA

PATIENT
  Sex: Female

DRUGS (3)
  1. CYTARABINE [Suspect]
     Indication: ACUTE MYELOID LEUKAEMIA
  2. OMACETAXINE [Suspect]
  3. CYTARABINE [Suspect]
     Indication: MYELODYSPLASTIC SYNDROME

REACTIONS (1)
  - FEBRILE NEUTROPENIA [None]
